FAERS Safety Report 4902040-2 (Version None)
Quarter: 2006Q1

REPORT INFORMATION
  Report Type: 
  Country: None (occurrence: None)
  Receive Date: 20060202
  Receipt Date: 20060202
  Transmission Date: 20060701
  Serious: Yes (Life-Threatening, Hospitalization, Other)
  Sender: FDA-Public Use
  Company Number: None

PATIENT
  Age: 23 Year
  Sex: Female
  Weight: 55 kg

DRUGS (4)
  1. ORTHO EVRA [Suspect]
     Indication: CONTRACEPTION
     Dosage: 3WKS PATCH, 1WK NO PATCH ONCE WEEKLY TRANSDERMAL
     Route: 062
     Dates: start: 20041130, end: 20050325
  2. ORTHO EVRA [Suspect]
     Indication: CONTRACEPTION
     Dosage: 3WKS PATCH, 1WK NO PATCH ONCE WEEKLY TRANSDERMAL
     Route: 062
     Dates: start: 20050701, end: 20051110
  3. ORTHO DIAPHRAGM [Concomitant]
  4. GYNOL II CONTRACEPTIVE JELLY [Concomitant]

REACTIONS (6)
  - DRUG WITHDRAWAL SYNDROME [None]
  - HAEMORRHAGE [None]
  - HEADACHE [None]
  - METRORRHAGIA [None]
  - NAUSEA [None]
  - OVARIAN CYST RUPTURED [None]
